FAERS Safety Report 5948313-6 (Version None)
Quarter: 2008Q4

REPORT INFORMATION
  Report Type: 
  Country: None (occurrence: None)
  Receive Date: 20081110
  Receipt Date: 20081110
  Transmission Date: 20090506
  Serious: Yes (Life-Threatening, Other)
  Sender: FDA-Public Use
  Company Number: None

PATIENT
  Age: 43 Year
  Sex: Male
  Weight: 72.5755 kg

DRUGS (1)
  1. ACYCLOVIR [Suspect]
     Indication: GENITAL HERPES
     Dosage: 400 MG TWICE A DAY PO
     Route: 048
     Dates: start: 20020201, end: 20081108

REACTIONS (8)
  - ANHEDONIA [None]
  - ANXIETY [None]
  - ASTHENIA [None]
  - DEPRESSION [None]
  - DIARRHOEA [None]
  - EMOTIONAL DISORDER [None]
  - HYPERSOMNIA [None]
  - SUICIDAL IDEATION [None]
